FAERS Safety Report 5494915-3 (Version None)
Quarter: 2007Q4

REPORT INFORMATION
  Report Type: 
  Country: None (occurrence: None)
  Receive Date: 20071024
  Receipt Date: 20071015
  Transmission Date: 20080405
  Serious: Yes (Other)
  Sender: FDA-Public Use
  Company Number: US-JNJFOC-20071004088

PATIENT
  Age: 35 Year
  Sex: Female
  Weight: 112.49 kg

DRUGS (2)
  1. TOPAMAX [Suspect]
     Indication: MIGRAINE PROPHYLAXIS
     Route: 048
  2. IMITREX [Concomitant]
     Indication: MIGRAINE

REACTIONS (5)
  - HYPOAESTHESIA FACIAL [None]
  - LOSS OF CONSCIOUSNESS [None]
  - SPEECH DISORDER [None]
  - TACHYCARDIA [None]
  - VERTIGO [None]
